FAERS Safety Report 23324729 (Version 1)
Quarter: 2023Q4

REPORT INFORMATION
  Report Type: Report from Study
  Country: IT (occurrence: IT)
  Receive Date: 20231221
  Receipt Date: 20231221
  Transmission Date: 20240109
  Serious: Yes (Hospitalization)
  Sender: FDA-Public Use
  Company Number: None

PATIENT
  Age: 25 Year

DRUGS (6)
  1. CITALOPRAM [Suspect]
     Active Substance: CITALOPRAM HYDROBROMIDE
     Dosage: DOSAGGIO: 56 CP?FREQUENZA SOMMINISTRAZIONE: TOTALE?VIA SOMMINISTRAZIONE: ORALE
     Route: 048
  2. DELORAZEPAM [Suspect]
     Active Substance: DELORAZEPAM
     Dosage: DOSAGGIO: 20?UNITA DI MISURA: MILLILITRI?FREQUENZA SOMMINISTRAZIONE: TOTALE?VIA SOMMINISTRAZIONE:...
     Route: 048
  3. FLURAZEPAM HYDROCHLORIDE [Suspect]
     Active Substance: FLURAZEPAM HYDROCHLORIDE
     Dosage: DOSAGGIO: 900?UNITA DI MISURA: MILLIGRAMMI?FREQUENZA SOMMINISTRAZIONE: TOTALE?VIA SOMMINISTRAZION...
     Route: 048
  4. VALPROATE SODIUM [Suspect]
     Active Substance: VALPROATE SODIUM
     Dosage: DOSAGGIO: 15.000?UNITA DI MISURA: MILLIGRAMMI?FREQUENZA SOMMINISTRAZIONE: TOTALE?VIA SOMMINISTRAZ...
     Route: 048
  5. QUETIAPINE [Suspect]
     Active Substance: QUETIAPINE
     Dosage: DOSAGGIO: 750?UNITA DI MISURA: MILLIGRAMMI?FREQUENZA SOMMINISTRAZIONE: TOTALE?VIA SOMMINISTRAZION...
     Route: 048
  6. ARIPIPRAZOLE [Suspect]
     Active Substance: ARIPIPRAZOLE
     Dosage: DOSAGGIO: 560?UNITA DI MISURA: MILLIGRAMMI?FREQUENZA SOMMINISTRAZIONE: TOTALE?VIA SOMMINISTRAZION...
     Route: 048

REACTIONS (2)
  - Toxicity to various agents [Recovering/Resolving]
  - Coma [Recovering/Resolving]

NARRATIVE: CASE EVENT DATE: 20221001
